FAERS Safety Report 4416282-6 (Version None)
Quarter: 2004Q3

REPORT INFORMATION
  Report Type: 
  Country: None (occurrence: None)
  Receive Date: 20040803
  Receipt Date: 20040720
  Transmission Date: 20050211
  Serious: Yes (Other)
  Sender: FDA-Public Use
  Company Number: 2004049501

PATIENT
  Age: 31 Year
  Sex: Female
  Weight: 181.4388 kg

DRUGS (4)
  1. BENADRYL [Suspect]
     Indication: PRURITUS
     Dosage: 2 KAPSEALS ONCE, ORAL
     Route: 048
     Dates: start: 20030101
  2. KAOPECTATE EXTRA STRENGTH (BISMUTH SUBSALICYLATE) [Suspect]
     Indication: DIARRHOEA
     Dosage: RECOMMENDED DOSE TWICE , ORAL
     Route: 048
     Dates: start: 20030101
  3. EPINEPHRINE [Suspect]
     Dosage: ^2 INJECTIONS^
     Dates: start: 20030101
  4. LOPERAMIDE HYDROCHLORIDE (LOPARAMIDE HYDROCHLORIDE) [Concomitant]

REACTIONS (4)
  - DYSPNOEA [None]
  - HEART RATE INCREASED [None]
  - PRURITUS [None]
  - RASH [None]
